FAERS Safety Report 4666071-2 (Version None)
Quarter: 2005Q2

REPORT INFORMATION
  Report Type: 
  Country: None (occurrence: None)
  Receive Date: 20050519
  Receipt Date: 20050420
  Transmission Date: 20051028
  Serious: Yes (Hospitalization)
  Sender: FDA-Public Use
  Company Number: US-GLAXOSMITHKLINE-A0555238A

PATIENT
  Age: 48 Year
  Sex: Female

DRUGS (7)
  1. LOTRONEX [Suspect]
     Indication: IRRITABLE BOWEL SYNDROME
     Route: 048
     Dates: start: 20050221
  2. TOPROL-XL [Concomitant]
     Route: 048
  3. NEXIUM [Concomitant]
     Dosage: 40MG PER DAY
     Route: 048
  4. BENICAR [Concomitant]
     Route: 048
  5. PAXIL [Concomitant]
     Route: 048
  6. NORVASC [Concomitant]
     Route: 048
  7. LIPITOR [Concomitant]
     Dosage: 10MG PER DAY
     Route: 048

REACTIONS (3)
  - ABDOMINAL PAIN [None]
  - BACK PAIN [None]
  - HAEMATOCHEZIA [None]
